FAERS Safety Report 7790792-6 (Version None)
Quarter: 2011Q3

REPORT INFORMATION
  Report Type: 
  Country: None (occurrence: None)
  Receive Date: 20110930
  Receipt Date: 20110928
  Transmission Date: 20111222
  Serious: Yes (Death, Hospitalization)
  Sender: FDA-Public Use
  Company Number: US-B.I. PHARMACEUTICALS,INC./RIDGEFIELD-2011-BP-08222BP

PATIENT
  Age: 73 Year
  Sex: Female
  Weight: 89 kg

DRUGS (15)
  1. VITAMIN D [Concomitant]
  2. IMDUR [Concomitant]
     Dosage: 120 MG
  3. URSODIAL [Concomitant]
     Dosage: 600 MG
  4. ASPIRIN [Concomitant]
     Dosage: 81 MG
  5. PROBENECID [Concomitant]
  6. PRILOSEC [Concomitant]
     Dosage: 40 MG
  7. TYLENOL-500 [Concomitant]
  8. SPIRIVA [Concomitant]
  9. NIFEREX [Concomitant]
     Dosage: 150 MG
  10. LASIX [Concomitant]
     Dosage: 20 MG
  11. PRADAXA [Suspect]
     Indication: MITRAL VALVE REPLACEMENT
     Dosage: 150 MG
     Dates: start: 20110101, end: 20110208
  12. COREG [Concomitant]
     Dosage: 50 MG
  13. NORCO [Concomitant]
  14. LACTULOSE [Concomitant]
     Dosage: 40 MG
  15. CRESTOR [Concomitant]
     Dosage: 40 MG

REACTIONS (7)
  - FALL [None]
  - DEATH [None]
  - HYPOVOLAEMIC SHOCK [None]
  - RIB FRACTURE [None]
  - HAEMOTHORAX [None]
  - ACUTE MYOCARDIAL INFARCTION [None]
  - MULTI-ORGAN FAILURE [None]
